FAERS Safety Report 17184317 (Version 2)
Quarter: 2019Q4

REPORT INFORMATION
  Report Type: Spontaneous
  Country: LT (occurrence: LT)
  Receive Date: 20191220
  Receipt Date: 20191226
  Transmission Date: 20200122
  Serious: Yes (Death, Hospitalization)
  Sender: FDA-Public Use
  Company Number: LT-MYLANLABS-2019M1125313

PATIENT
  Age: 85 Year
  Sex: Female
  Weight: 85 kg

DRUGS (6)
  1. VANCOMYCIN [Suspect]
     Active Substance: VANCOMYCIN
     Indication: PRODUCT USED FOR UNKNOWN INDICATION
     Dosage: 1 G, QD
     Route: 042
  2. CEFTRIAXONE. [Suspect]
     Active Substance: CEFTRIAXONE
     Indication: PRODUCT USED FOR UNKNOWN INDICATION
     Dosage: 2 G, BID
     Route: 042
     Dates: start: 20180104, end: 20180117
  3. CEFUROXIME. [Suspect]
     Active Substance: CEFUROXIME
     Dosage: 1.5 MG, TID
     Route: 042
     Dates: start: 20180129, end: 20180131
  4. CEFUROXIME. [Suspect]
     Active Substance: CEFUROXIME
     Indication: ANTIBIOTIC THERAPY
     Dosage: 1.5 G, TID
     Route: 042
  5. AMPICILLIN AND SULBACTAM [Suspect]
     Active Substance: AMPICILLIN SODIUM\SULBACTAM SODIUM
     Indication: SEPSIS
     Dosage: 750 MILLIGRAM, QD (375 MG, BID)
     Route: 048
  6. CEFUROXIME. [Suspect]
     Active Substance: CEFUROXIME
     Dosage: 1.5 MG, TID
     Route: 042
     Dates: start: 20171225, end: 20180104

REACTIONS (3)
  - Multiple organ dysfunction syndrome [Fatal]
  - Product use in unapproved indication [Unknown]
  - Sepsis [Fatal]

NARRATIVE: CASE EVENT DATE: 20180131
